FAERS Safety Report 10111062 (Version 1)
Quarter: 2014Q2

REPORT INFORMATION
  Report Type: Spontaneous
  Country: US (occurrence: None)
  Receive Date: 20140424
  Receipt Date: 20140424
  Transmission Date: 20141212
  Serious: Yes (Disabling)
  Sender: FDA-Public Use
  Company Number: None

PATIENT
  Age: 76 Year
  Sex: Female
  Weight: 59.88 kg

DRUGS (8)
  1. CIPROFLOXACIN [Suspect]
     Indication: CYSTITIS
     Dosage: 500MG, 1 TABLET MORNING, 1 TABLET EVENING, TWICE DAILY, BY MOUTH
     Route: 048
     Dates: start: 20140407, end: 20140411
  2. LEVOTHYROXINE 75 MCG [Concomitant]
  3. LATANOPROST (FOR EYES) [Concomitant]
  4. CALCIUM [Concomitant]
  5. MULTIVITAM [Concomitant]
  6. BABY ASPIRIN [Concomitant]
  7. GLUCOSAMINE HCI WITH MSM 1500MG [Concomitant]
  8. VITAMIN D3 [Concomitant]

REACTIONS (4)
  - Arthralgia [None]
  - Arthralgia [None]
  - Gait disturbance [None]
  - Dysstasia [None]
